FAERS Safety Report 26217736 (Version 1)
Quarter: 2025Q4

REPORT INFORMATION
  Report Type: Spontaneous
  Country: US (occurrence: US)
  Receive Date: 20251231
  Receipt Date: 20251231
  Transmission Date: 20260118
  Serious: Yes (Hospitalization)
  Sender: MYLAN
  Company Number: US-MYLANLABS-2025M1111662

PATIENT
  Age: 70 Year
  Sex: Female

DRUGS (6)
  1. PREDNISONE [Suspect]
     Active Substance: PREDNISONE
     Indication: Organising pneumonia
     Dosage: UNK
  2. PREDNISONE [Suspect]
     Active Substance: PREDNISONE
     Dosage: 60 MILLIGRAM, QD
  3. BACLOFEN [Suspect]
     Active Substance: BACLOFEN
     Indication: Myoclonus
     Dosage: UNK
  4. BACLOFEN [Suspect]
     Active Substance: BACLOFEN
     Indication: Gastrointestinal disorder
  5. FLEXERIL [Suspect]
     Active Substance: CYCLOBENZAPRINE HYDROCHLORIDE
     Indication: Myoclonus
     Dosage: UNK
  6. FLEXERIL [Suspect]
     Active Substance: CYCLOBENZAPRINE HYDROCHLORIDE
     Indication: Gastrointestinal disorder

REACTIONS (1)
  - Drug ineffective [Unknown]
